FAERS Safety Report 25565860 (Version 1)
Quarter: 2025Q3

REPORT INFORMATION
  Report Type: Spontaneous
  Country: US (occurrence: None)
  Receive Date: 20250715
  Receipt Date: 20250715
  Transmission Date: 20251020
  Serious: Yes (Hospitalization, Disabling)
  Sender: FDA-CTU
  Company Number: None

PATIENT
  Age: 46 Year
  Sex: Male
  Weight: 130.5 kg

DRUGS (6)
  1. AMVUTTRA [Suspect]
     Active Substance: VUTRISIRAN
     Dates: start: 20250428, end: 20250428
  2. PREGABALIN [Concomitant]
     Active Substance: PREGABALIN
  3. LISINOPRIL [Concomitant]
     Active Substance: LISINOPRIL
  4. ROSUVASTATIN [Concomitant]
     Active Substance: ROSUVASTATIN
  5. ROPINIROLE [Concomitant]
     Active Substance: ROPINIROLE
  6. glyxambi 25-5mg [Concomitant]

REACTIONS (15)
  - Fatigue [None]
  - Muscle spasms [None]
  - Muscle spasms [None]
  - Cerebellar tonsillar ectopia [None]
  - Neck pain [None]
  - Headache [None]
  - Muscular weakness [None]
  - Balance disorder [None]
  - Fatigue [None]
  - Arnold-Chiari malformation [None]
  - Pain [None]
  - Post procedural complication [None]
  - Vitamin A decreased [None]
  - Injection site pain [None]
  - Vision blurred [None]

NARRATIVE: CASE EVENT DATE: 20250517
